FAERS Safety Report 6128316-1 (Version None)
Quarter: 2009Q1

REPORT INFORMATION
  Report Type: 
  Country: None (occurrence: None)
  Receive Date: 20090323
  Receipt Date: 20090318
  Transmission Date: 20090719
  Serious: Yes (Life-Threatening, Hospitalization, Disabling, Other)
  Sender: FDA-Public Use
  Company Number: A0773835A

PATIENT
  Sex: Male

DRUGS (2)
  1. HYCAMTIN [Suspect]
     Dosage: 2.3MGM2 PER DAY
     Route: 048
     Dates: start: 20091201
  2. NO CONCURRENT MEDICATION [Concomitant]

REACTIONS (4)
  - ANAEMIA [None]
  - FEBRILE NEUTROPENIA [None]
  - NEUTROPENIA [None]
  - SEPSIS [None]
